FAERS Safety Report 6991959-7 (Version None)
Quarter: 2010Q3

REPORT INFORMATION
  Report Type: 
  Country: None (occurrence: None)
  Receive Date: 20100917
  Receipt Date: 20100908
  Transmission Date: 20110219
  Serious: Yes (Hospitalization)
  Sender: FDA-Public Use
  Company Number: US-US-EMD SERONO, INC.-7017178

PATIENT
  Sex: Female

DRUGS (4)
  1. REBIF [Suspect]
     Indication: MULTIPLE SCLEROSIS
     Route: 058
     Dates: start: 20050617
  2. ATENOLOL [Concomitant]
     Indication: HYPERTENSION
  3. CHANTIX [Concomitant]
     Indication: SMOKING CESSATION THERAPY
  4. HYDROCHLOROTHIAZIDE [Concomitant]
     Indication: HYPERTENSION
     Dates: end: 20100701

REACTIONS (6)
  - BLOOD POTASSIUM DECREASED [None]
  - HYPOAESTHESIA [None]
  - HYPOTENSION [None]
  - INJECTION SITE PRURITUS [None]
  - MOTOR DYSFUNCTION [None]
  - MOVEMENT DISORDER [None]
